FAERS Safety Report 9084128 (Version 2)
Quarter: 2013Q2

REPORT INFORMATION
  Report Type: Report from Study
  Country: NL (occurrence: NL)
  Receive Date: 20130218
  Receipt Date: 20130603
  Transmission Date: 20140414
  Serious: Yes (Death)
  Sender: FDA-Public Use
  Company Number: PHHY2013NL015059

PATIENT
  Sex: Female

DRUGS (6)
  1. ZOMETA [Suspect]
     Indication: OSTEOPOROSIS
     Dosage: 4MG, 100ML PER 28 DAYS
     Route: 042
  2. ZOMETA [Suspect]
     Dosage: 4 MG, 100ML PER 28 DAYS
     Route: 042
     Dates: start: 20120614
  3. ZOMETA [Suspect]
     Dosage: 4 MG, 100ML PER 28 DAYS
     Route: 042
     Dates: start: 20121224
  4. ZOMETA [Suspect]
     Dosage: 4 MG, 100ML PER 28 DAYS
     Route: 042
     Dates: start: 20130121, end: 201302
  5. METFORMIN [Concomitant]
     Dosage: 500 UG, 1DD
     Dates: start: 2005
  6. SPIRONOLACTONE [Concomitant]
     Dosage: 100 MG, 1DD
     Dates: start: 2009

REACTIONS (5)
  - Terminal state [Fatal]
  - Hepatic cirrhosis [Fatal]
  - Ascites [Fatal]
  - Hepatorenal syndrome [Fatal]
  - General physical health deterioration [Fatal]
